FAERS Safety Report 17115939 (Version 1)
Quarter: 2019Q4

REPORT INFORMATION
  Report Type: Spontaneous
  Country: US (occurrence: US)
  Receive Date: 20191204
  Receipt Date: 20191204
  Transmission Date: 20200122
  Serious: Yes (Hospitalization)
  Sender: FDA-Public Use
  Company Number: None

PATIENT
  Age: 69 Year
  Sex: Male
  Weight: 175 kg

DRUGS (8)
  1. DILTIAZEM 90MG BID [Concomitant]
  2. RIVAROXABAN [Suspect]
     Active Substance: RIVAROXABAN
     Indication: DEEP VEIN THROMBOSIS
     Route: 048
     Dates: start: 20140315
  3. PANTOPRAZOLE 40MG DAILY [Concomitant]
  4. COLESTIPOL 2G BID [Concomitant]
  5. RIVAROXABAN [Suspect]
     Active Substance: RIVAROXABAN
     Indication: ATRIAL FIBRILLATION
     Route: 048
     Dates: start: 20140315
  6. POTASSIUM 20MEQ DAILY [Concomitant]
  7. LEVOTHYROXINE 100MCG DAILY [Concomitant]
  8. FERROUS SULFATE 325MG DAILY [Concomitant]

REACTIONS (1)
  - Gastrointestinal haemorrhage [None]

NARRATIVE: CASE EVENT DATE: 20140331
